FAERS Safety Report 18735187 (Version 7)
Quarter: 2022Q4

REPORT INFORMATION
  Report Type: Report from Study
  Country: US (occurrence: US)
  Receive Date: 20210113
  Receipt Date: 20221110
  Transmission Date: 20230112
  Serious: No
  Sender: FDA-Public Use
  Company Number: US-KYOWAKIRIN-2021BKK000176

PATIENT

DRUGS (7)
  1. CRYSVITA [Suspect]
     Active Substance: BUROSUMAB-TWZA
     Indication: Hereditary hypophosphataemic rickets
     Dosage: 60 MG, EVERY 4 WEEKS
     Route: 058
     Dates: start: 20200403
  2. CRYSVITA [Suspect]
     Active Substance: BUROSUMAB-TWZA
     Indication: Hereditary hypophosphataemic rickets
     Dosage: 60 MG, EVERY 4 WEEKS
     Route: 058
     Dates: start: 20200407
  3. CRYSVITA [Suspect]
     Active Substance: BUROSUMAB-TWZA
     Dosage: 50 MG, 1X/4 WEEKS(STRENGTH 20 AND 30 MG/ML COMBINED TO ACHIEVE DOSE OF 50 MG)
     Route: 058
  4. CRYSVITA [Suspect]
     Active Substance: BUROSUMAB-TWZA
     Dosage: 50 MG, 1X/4 WEEKS(STRENGTH 20 AND 30 MG/ML COMBINED TO ACHIEVE DOSE OF 50 MG)
     Route: 058
  5. CRYSVITA [Suspect]
     Active Substance: BUROSUMAB-TWZA
     Dosage: 50 MG, 1X/4 WEEKS(STRENGTH 20 AND 30 MG/ML COMBINED TO ACHIEVE DOSE OF 50 MG)
     Route: 058
  6. CRYSVITA [Suspect]
     Active Substance: BUROSUMAB-TWZA
     Indication: Hereditary hypophosphataemic rickets
     Dosage: 50 MG, 1X/4 WEEKS(STRENGTH 20 AND 30 MG/ML COMBINED TO ACHIEVE DOSE OF 50 MG)
     Route: 058
  7. CRYSVITA [Suspect]
     Active Substance: BUROSUMAB-TWZA
     Dosage: 50 MG, 1X/4 WEEKS(STRENGTH 20 AND 30 MG/ML COMBINED TO ACHIEVE DOSE OF 50 MG)
     Route: 058

REACTIONS (8)
  - Oral pain [Unknown]
  - Condition aggravated [Unknown]
  - Arthralgia [Unknown]
  - Migraine [Unknown]
  - Malaise [Unknown]
  - Bone pain [Unknown]
  - Toothache [Unknown]
  - Tooth abscess [Unknown]
